FAERS Safety Report 7726474-6 (Version None)
Quarter: 2011Q3

REPORT INFORMATION
  Report Type: 
  Country: None (occurrence: None)
  Receive Date: 20110902
  Receipt Date: 20110823
  Transmission Date: 20111222
  Serious: Yes (Other)
  Sender: FDA-Public Use
  Company Number: US-BAYER-2011-014904

PATIENT
  Age: 17 Year
  Sex: Female
  Weight: 52.608 kg

DRUGS (5)
  1. MOTRIN [Concomitant]
     Indication: OTITIS MEDIA
     Dosage: UNK
     Dates: start: 20080927
  2. YAZ [Suspect]
     Indication: PRODUCT USED FOR UNKNOWN INDICATION
     Dosage: UNK
     Dates: start: 20080801, end: 20081201
  3. AURALGAN [BENZOCAINE,PHENAZONE] [Concomitant]
     Indication: OTITIS MEDIA
     Dosage: UNK
     Dates: start: 20080927
  4. AMOXICILLIN [Concomitant]
     Indication: OTITIS MEDIA
     Dosage: 500 MG, TID
     Route: 048
     Dates: start: 20080927
  5. TYLENOL-500 [Concomitant]
     Dosage: 1 G, UNK
     Route: 048
     Dates: start: 20080927

REACTIONS (5)
  - ABDOMINAL PAIN [None]
  - GALLBLADDER DISORDER [None]
  - CHOLELITHIASIS [None]
  - CHOLECYSTITIS CHRONIC [None]
  - INJURY [None]
